FAERS Safety Report 4764355-0 (Version None)
Quarter: 2005Q3

REPORT INFORMATION
  Report Type: 
  Country: None (occurrence: None)
  Receive Date: 20050906
  Receipt Date: 20050825
  Transmission Date: 20060218
  Serious: Yes (Other)
  Sender: FDA-Public Use
  Company Number: 2005120517

PATIENT
  Sex: Male

DRUGS (10)
  1. ALPRAZOLAM [Suspect]
     Indication: ILL-DEFINED DISORDER
  2. NEURONTIN [Suspect]
     Indication: ILL-DEFINED DISORDER
  3. DEXIDRINE (DEXAMFETAMINE SULFATE) [Concomitant]
  4. DURAGESIC-100 [Concomitant]
  5. PROMETHAGAN (PROMETHAZINE HYDROCHLORIDE) [Concomitant]
  6. OXYCONTIN [Suspect]
     Indication: ILL-DEFINED DISORDER
  7. DEXTROSTAT [Suspect]
     Indication: ILL-DEFINED DISORDER
  8. DESOXYN [Suspect]
     Indication: ILL-DEFINED DISORDER
  9. DEMEROL [Suspect]
     Indication: ILL-DEFINED DISORDER
  10. NEXIUM [Concomitant]

REACTIONS (1)
  - ACCIDENT [None]
